FAERS Safety Report 25502815 (Version 2)
Quarter: 2025Q3

REPORT INFORMATION
  Report Type: Report from Study
  Country: US (occurrence: US)
  Receive Date: 20250702
  Receipt Date: 20250715
  Transmission Date: 20251021
  Serious: Yes (Hospitalization, Other)
  Sender: ABBVIE
  Company Number: US-ABBVIE-6349193

PATIENT
  Age: 60 Year
  Sex: Female

DRUGS (2)
  1. RINVOQ [Suspect]
     Active Substance: UPADACITINIB
     Indication: Rheumatoid arthritis
     Route: 048
     Dates: start: 20240712
  2. RINVOQ [Suspect]
     Active Substance: UPADACITINIB
     Indication: Rheumatoid arthritis
     Route: 048
     Dates: start: 20240613

REACTIONS (8)
  - Loss of consciousness [Unknown]
  - Kidney infection [Unknown]
  - Eye contusion [Unknown]
  - Freezing phenomenon [Unknown]
  - Pyrexia [Unknown]
  - Pain in extremity [Unknown]
  - Burning sensation [Unknown]
  - Hypophagia [Unknown]

NARRATIVE: CASE EVENT DATE: 20250601
